FAERS Safety Report 20423598 (Version 1)
Quarter: 2022Q1

REPORT INFORMATION
  Report Type: Spontaneous
  Country: US (occurrence: US)
  Receive Date: 20220203
  Receipt Date: 20220203
  Transmission Date: 20220423
  Serious: Yes (Other)
  Sender: FDA-Public Use
  Company Number: US-TEVA-2022-US-2004773

PATIENT
  Age: 29 Year
  Sex: Female

DRUGS (21)
  1. OXYCODONE [Suspect]
     Active Substance: OXYCODONE
     Indication: Multiple fractures
     Route: 048
     Dates: start: 2004, end: 2010
  2. OXYCODONE [Suspect]
     Active Substance: OXYCODONE
     Indication: Pain
  3. TRAMADOL HCL [Suspect]
     Active Substance: TRAMADOL HYDROCHLORIDE
     Indication: Multiple fractures
     Dosage: PRN
     Route: 048
     Dates: start: 19931030
  4. TRAMADOL HCL [Suspect]
     Active Substance: TRAMADOL HYDROCHLORIDE
     Indication: Pain
  5. ACETAMINOPHEN\HYDROCODONE [Suspect]
     Active Substance: ACETAMINOPHEN\HYDROCODONE
     Indication: Pain
     Dosage: 10/325 MG , IN 2008, TAKE 1 OR 2 TAB 4 TIMES A DAY  AS NEEDED
     Route: 048
  6. ACETAMINOPHEN\HYDROCODONE [Suspect]
     Active Substance: ACETAMINOPHEN\HYDROCODONE
     Dosage: 12 DOSAGE FORMS DAILY; 10/325 MG , IN 2006
     Route: 048
  7. ACETAMINOPHEN\HYDROCODONE [Suspect]
     Active Substance: ACETAMINOPHEN\HYDROCODONE
     Dosage: 10/325 MG,  TAKE 2/3 TAB Q4H AS NEEDED FOR PAIN (MAX 12 TAB/DAY), IN 2006
     Route: 048
  8. ACETAMINOPHEN\HYDROCODONE [Suspect]
     Active Substance: ACETAMINOPHEN\HYDROCODONE
     Dosage: 10/325 MG, TAKE 3 TAB 4 TIMES A DAY, IN -2007
     Route: 048
  9. NORCO [Suspect]
     Active Substance: ACETAMINOPHEN\HYDROCODONE BITARTRATE
     Indication: Multiple fractures
     Route: 048
     Dates: start: 2004, end: 2010
  10. NORCO [Suspect]
     Active Substance: ACETAMINOPHEN\HYDROCODONE BITARTRATE
     Indication: Pain
  11. OXYCONTIN [Suspect]
     Active Substance: OXYCODONE HYDROCHLORIDE
     Indication: Multiple fractures
     Route: 048
     Dates: start: 2004, end: 2010
  12. OXYCONTIN [Suspect]
     Active Substance: OXYCODONE HYDROCHLORIDE
     Indication: Pain
     Dosage: IN -2008, 1-3 TAB 2 TIMES A DAY.
     Route: 064
  13. VICODIN [Suspect]
     Active Substance: ACETAMINOPHEN\HYDROCODONE BITARTRATE
     Indication: Multiple fractures
     Route: 048
     Dates: start: 2004, end: 2010
  14. VICODIN [Suspect]
     Active Substance: ACETAMINOPHEN\HYDROCODONE BITARTRATE
     Indication: Pain
  15. OXYCODONE [Suspect]
     Active Substance: OXYCODONE
     Indication: Pain
     Dosage: TAKE 2-3 TAB BID, IN -2007
     Route: 048
  16. OXYCODONE [Suspect]
     Active Substance: OXYCODONE
     Dosage: 6 DOSAGE FORMS DAILY; IN -2006
     Route: 048
  17. OXYCODONE [Suspect]
     Active Substance: OXYCODONE
     Dosage: TAKE1 TO 3 TAB BID, IN -2008.
     Route: 048
  18. OXYCODONE [Suspect]
     Active Substance: OXYCODONE
     Dosage: TAKE 1 OR 2 TAB BID
     Route: 048
  19. OXYCODONE [Suspect]
     Active Substance: OXYCODONE
     Dosage: 6 DOSAGE FORMS DAILY; IN -2007.
     Route: 048
  20. XANAX [Concomitant]
     Active Substance: ALPRAZOLAM
     Indication: Depression
     Dosage: RECENTLY BEGAN TAKING THEM AGAIN AS NEEDED
     Dates: start: 2004, end: 2010
  21. XANAX [Concomitant]
     Active Substance: ALPRAZOLAM
     Indication: Anxiety

REACTIONS (7)
  - Drug dependence [Unknown]
  - Maternal exposure during pregnancy [Unknown]
  - Live birth [Unknown]
  - Amniorrhoea [Recovered/Resolved]
  - Headache [Recovered/Resolved]
  - Vitreous floaters [Recovered/Resolved]
  - Gestational hypertension [Recovered/Resolved]

NARRATIVE: CASE EVENT DATE: 20070730
